FAERS Safety Report 21579761 (Version 1)
Quarter: 2022Q4

REPORT INFORMATION
  Report Type: Spontaneous
  Country: US (occurrence: None)
  Receive Date: 20221109
  Receipt Date: 20221109
  Transmission Date: 20230112
  Serious: Yes (Hospitalization)
  Sender: FDA-Public Use
  Company Number: None

PATIENT
  Sex: Female

DRUGS (1)
  1. CAPECITABINE [Suspect]
     Active Substance: CAPECITABINE
     Dosage: 2000 BID ORAL?
     Route: 048

REACTIONS (5)
  - Troponin increased [None]
  - Fatigue [None]
  - Product dose omission issue [None]
  - Chest pain [None]
  - Musculoskeletal discomfort [None]
